FAERS Safety Report 9465622 (Version 2)
Quarter: 2013Q3

REPORT INFORMATION
  Report Type: Spontaneous
  Country: AU (occurrence: AU)
  Receive Date: 20130820
  Receipt Date: 20130820
  Transmission Date: 20140515
  Serious: Yes (Other)
  Sender: FDA-Public Use
  Company Number: AU-ASTRAZENECA-2012SE54629

PATIENT
  Sex: Female

DRUGS (5)
  1. ATACAND [Suspect]
     Indication: ESSENTIAL HYPERTENSION
     Route: 048
  2. ATACAND PLUS [Suspect]
     Indication: ESSENTIAL HYPERTENSION
     Dosage: 16/12.5 MG
     Route: 048
  3. PHYSIOTENS [Suspect]
     Indication: ESSENTIAL HYPERTENSION
     Route: 065
  4. CARDIZEM [Suspect]
     Indication: PRODUCT USED FOR UNKNOWN INDICATION
     Route: 065
  5. NORVASC [Concomitant]
     Indication: ESSENTIAL HYPERTENSION
     Route: 048

REACTIONS (5)
  - Dysphagia [Unknown]
  - Dry mouth [Unknown]
  - Insomnia [Unknown]
  - Somnolence [Unknown]
  - Adverse event [Unknown]
